FAERS Safety Report 24864417 (Version 3)
Quarter: 2025Q4

REPORT INFORMATION
  Report Type: Spontaneous
  Country: US (occurrence: US)
  Receive Date: 20250120
  Receipt Date: 20251025
  Transmission Date: 20260117
  Serious: No
  Sender: TRAVERE THERAPEUTICS
  Company Number: US-TRAVERE-2024TVT01327

PATIENT
  Age: 64 Year
  Sex: Female

DRUGS (1)
  1. FILSPARI [Suspect]
     Active Substance: SPARSENTAN
     Indication: IgA nephropathy
     Route: 048
     Dates: start: 20241016

REACTIONS (3)
  - Dizziness [Recovered/Resolved]
  - Hypertension [Unknown]
  - Diarrhoea [None]

NARRATIVE: CASE EVENT DATE: 20241016
